FAERS Safety Report 5344987-1 (Version None)
Quarter: 2007Q2

REPORT INFORMATION
  Report Type: 
  Country: None (occurrence: None)
  Receive Date: 20070416
  Receipt Date: 20061218
  Transmission Date: 20071010
  Serious: Yes (Hospitalization)
  Sender: FDA-Public Use
  Company Number: 2006SP004465

PATIENT
  Age: 72 Year
  Sex: Male
  Weight: 100.4717 kg

DRUGS (7)
  1. LUNESTA [Suspect]
     Indication: INSOMNIA
     Dosage: 2 MG;HS;ORAL
     Route: 048
     Dates: start: 20061024, end: 20061125
  2. AVODART [Suspect]
     Indication: BENIGN PROSTATIC HYPERPLASIA
     Dosage: .5 MG;QD;ORAL
     Route: 048
  3. DR. AKERMAN'S DOG SHAMPOO [Suspect]
  4. CENTRUM SILVER [Concomitant]
  5. ALEVE [Concomitant]
  6. POTASSIUM CHLORIDE [Concomitant]
  7. MAGNESIUM SULFATE [Concomitant]

REACTIONS (1)
  - DERMATITIS [None]
